FAERS Safety Report 16353627 (Version 2)
Quarter: 2019Q2

REPORT INFORMATION
  Report Type: Spontaneous
  Country: US (occurrence: US)
  Receive Date: 20190524
  Receipt Date: 20190530
  Transmission Date: 20190711
  Serious: Yes (Hospitalization, Other)
  Sender: FDA-Public Use
  Company Number: US-PFIZER INC-2018209357

PATIENT
  Age: 76 Year
  Sex: Female

DRUGS (2)
  1. IBRANCE [Suspect]
     Active Substance: PALBOCICLIB
     Indication: BREAST CANCER STAGE IV
     Dosage: 100 MG, CYCLIC (100 MG 21 DAY, 7 DAYS OFF)
     Dates: start: 201606
  2. LETROZOLE. [Concomitant]
     Active Substance: LETROZOLE
     Dosage: 2.5 MG, DAILY
     Dates: start: 201606

REACTIONS (5)
  - Pulmonary oedema [Not Recovered/Not Resolved]
  - Stomatitis [Recovered/Resolved]
  - White blood cell count decreased [Unknown]
  - Immunodeficiency [Unknown]
  - Dyspnoea [Not Recovered/Not Resolved]
